FAERS Safety Report 20133246 (Version 1)
Quarter: 2021Q4

REPORT INFORMATION
  Report Type: Spontaneous
  Country: JP (occurrence: JP)
  Receive Date: 20211201
  Receipt Date: 20211201
  Transmission Date: 20220303
  Serious: Yes (Other)
  Sender: FDA-Public Use
  Company Number: JP-LUPIN PHARMACEUTICALS INC.-2021-23323

PATIENT
  Age: 86 Year
  Sex: Female

DRUGS (8)
  1. TRAMADOL [Suspect]
     Active Substance: TRAMADOL
     Indication: Trigeminal neuralgia
     Dosage: 4 DOSAGE FORM-TABLET (RE-INITIATED)
     Route: 048
  2. TRAMADOL [Suspect]
     Active Substance: TRAMADOL
     Dosage: 4 DOSAGE FORM-TABLET (RE-INITIATED)
     Route: 048
  3. PREGABALIN [Suspect]
     Active Substance: PREGABALIN
     Indication: Trigeminal neuralgia
     Dosage: 75 MILLIGRAM
     Route: 048
  4. PREGABALIN [Suspect]
     Active Substance: PREGABALIN
     Dosage: 75 MILLIGRAM (RE-INITIATED)
     Route: 048
  5. CARBAMAZEPINE [Suspect]
     Active Substance: CARBAMAZEPINE
     Indication: Trigeminal neuralgia
     Dosage: 800 MILLIGRAM
     Route: 048
  6. CARBAMAZEPINE [Suspect]
     Active Substance: CARBAMAZEPINE
     Dosage: 800 MILLIGRAM (RE-INITIATED)
     Route: 048
  7. FOSPHENYTOIN [Concomitant]
     Active Substance: FOSPHENYTOIN
     Indication: Trigeminal neuralgia
     Dosage: 750 MILLIGRAM-ADMINISTERED ONCE; FOSPHENYTOIN WAS DILUTED IN SODIUM CHLORIDE [NORMAL SALINE] TO GET
     Route: 042
  8. SODIUM CHLORIDE [Concomitant]
     Active Substance: SODIUM CHLORIDE
     Indication: Vehicle solution use
     Dosage: UNK FOSPHENYTOIN WAS DILUTED IN SODIUM CHLORIDE [NORMAL SALINE] TO GET A CONCENTRATION OF 15 MG/ML A
     Route: 042

REACTIONS (1)
  - Drug ineffective [Unknown]
